FAERS Safety Report 17514493 (Version 1)
Quarter: 2020Q1

REPORT INFORMATION
  Report Type: Report from Study
  Country: None (occurrence: BE)
  Receive Date: 20200307
  Receipt Date: 20200307
  Transmission Date: 20200409
  Serious: Yes (Hospitalization)
  Sender: FDA-Public Use
  Company Number: BE-ABBVIE-20K-013-3304108-00

PATIENT
  Sex: Female
  Weight: 59 kg

DRUGS (6)
  1. SINEMET CR [Concomitant]
     Active Substance: CARBIDOPA\LEVODOPA
     Indication: PARKINSON^S DISEASE
     Dosage: FORM STRENGTH: 25MG/100MG?ONCE A DAY, ALTERNATING WITH PROLOPA HBS
     Route: 048
  2. DUODOPA [Suspect]
     Active Substance: CARBIDOPA\LEVODOPA
     Indication: PARKINSON^S DISEASE
     Dosage: UNKNOWN DOSAGES
     Route: 050
     Dates: start: 20141027, end: 20190515
  3. DUODOPA [Suspect]
     Active Substance: CARBIDOPA\LEVODOPA
     Dosage: MD=3.8ML, CD=3.5ML/HR DURING 16HRS, ED=1.8ML
     Route: 050
     Dates: start: 20191016
  4. PROLOPA [Concomitant]
     Active Substance: BENSERAZIDE\LEVODOPA
     Indication: PRODUCT USED FOR UNKNOWN INDICATION
     Dosage: FORM STRENGTH: 100MG/25MG?125 DISP
  5. DUODOPA [Suspect]
     Active Substance: CARBIDOPA\LEVODOPA
     Dosage: MD=3.6ML, CD=3.5ML/HR DURING 16HRS, ED=1.8ML
     Route: 050
     Dates: start: 20190515, end: 20191016
  6. SINEMET CR [Concomitant]
     Active Substance: CARBIDOPA\LEVODOPA
     Dosage: FORM STRENGTH:25/100MG; FREQUENCY:WHEN GOING TO SLEEP+1 UNIT DURING THE NIGHT IF NECESSARY

REACTIONS (2)
  - Urinary tract infection [Recovered/Resolved]
  - Fatigue [Unknown]
